FAERS Safety Report 9196004 (Version 1)
Quarter: 2013Q1

REPORT INFORMATION
  Report Type: Spontaneous
  Country: US (occurrence: None)
  Receive Date: 20120705
  Receipt Date: 20120705
  Transmission Date: 20140127
  Serious: Yes (Hospitalization)
  Sender: FDA-Public Use
  Company Number: US-CYPR-2012-000025

PATIENT
  Age: 76 Year
  Sex: Female
  Weight: 89.81 kg

DRUGS (9)
  1. CLOPIDOGREL [Suspect]
     Indication: ANTIPLATELET THERAPY
     Route: 048
     Dates: start: 20110324, end: 20120210
  2. ASPIRIN [Suspect]
     Indication: CORONARY ARTERY DISEASE
     Route: 048
     Dates: start: 20100325
  3. SIMVASTATIN [Concomitant]
  4. NITROGLYCERINE [Concomitant]
  5. CALCIUM CITRATE [Concomitant]
  6. FIBER [Concomitant]
  7. FISH [Concomitant]
  8. CYPHER STENT [Concomitant]
  9. CYPHER STENT (2) [Concomitant]

REACTIONS (1)
  - Angina unstable [None]
